FAERS Safety Report 5191460-X (Version None)
Quarter: 2006Q4

REPORT INFORMATION
  Report Type: 
  Country: None (occurrence: None)
  Receive Date: 20061219
  Receipt Date: 20061208
  Transmission Date: 20070319
  Serious: Yes (Other)
  Sender: FDA-Public Use
  Company Number: 2006S1000300

PATIENT
  Age: 1 Month
  Sex: Male

DRUGS (1)
  1. VERDESO [Suspect]
     Indication: SEBORRHOEIC DERMATITIS
     Dosage: 0.05 PCT; BID; TOP
     Route: 061
     Dates: start: 20061205, end: 20061208

REACTIONS (1)
  - SKIN EXFOLIATION [None]
